FAERS Safety Report 17189497 (Version 2)
Quarter: 2019Q4

REPORT INFORMATION
  Report Type: Spontaneous
  Country: JP (occurrence: JP)
  Receive Date: 20191223
  Receipt Date: 20191231
  Transmission Date: 20200122
  Serious: Yes (Other)
  Sender: FDA-Public Use
  Company Number: JP-ASTELLAS-2019JP020809

PATIENT
  Age: 71 Year
  Sex: Male

DRUGS (3)
  1. XOSPATA [Suspect]
     Active Substance: GILTERITINIB
     Route: 048
  2. XOSPATA [Suspect]
     Active Substance: GILTERITINIB
     Indication: ACUTE MYELOID LEUKAEMIA
     Route: 048
     Dates: start: 20190824
  3. XOSPATA [Suspect]
     Active Substance: GILTERITINIB
     Route: 048

REACTIONS (3)
  - Neutropenia [Recovered/Resolved]
  - White blood cell count decreased [Recovered/Resolved]
  - Rash [Recovering/Resolving]

NARRATIVE: CASE EVENT DATE: 20191126
